FAERS Safety Report 18910862 (Version 1)
Quarter: 2021Q1

REPORT INFORMATION
  Report Type: Spontaneous
  Country: GB (occurrence: GB)
  Receive Date: 20210218
  Receipt Date: 20210218
  Transmission Date: 20210420
  Serious: Yes (Hospitalization, Other)
  Sender: FDA-Public Use
  Company Number: GB-ADVANZ PHARMA-202102001315

PATIENT

DRUGS (4)
  1. PREDNISOLONE. [Suspect]
     Active Substance: PREDNISOLONE
     Indication: LANGERHANS^ CELL HISTIOCYTOSIS
     Dosage: UNK
  2. VINBLASTINE [Suspect]
     Active Substance: VINBLASTINE
     Indication: LANGERHANS^ CELL HISTIOCYTOSIS
     Dosage: UNK
  3. CYTARABINE. [Concomitant]
     Active Substance: CYTARABINE
     Indication: SALVAGE THERAPY
     Dosage: UNK
  4. CLADRIBINE. [Concomitant]
     Active Substance: CLADRIBINE
     Indication: SALVAGE THERAPY
     Dosage: UNK

REACTIONS (4)
  - Langerhans^ cell histiocytosis [Recovering/Resolving]
  - Hepatic failure [Recovering/Resolving]
  - Pancytopenia [Recovering/Resolving]
  - Condition aggravated [Recovering/Resolving]
